FAERS Safety Report 4663748-X (Version None)
Quarter: 2005Q2

REPORT INFORMATION
  Report Type: 
  Country: None (occurrence: None)
  Receive Date: 20050511
  Receipt Date: 20050314
  Transmission Date: 20051028
  Serious: Yes (Other)
  Sender: FDA-Public Use
  Company Number: 398731

PATIENT
  Age: 52 Year
  Sex: Male
  Weight: 65.8 kg

DRUGS (4)
  1. PEGASYS [Suspect]
     Indication: HEPATITIS C VIRUS
     Dosage: 180 MCG, 1 PER WEEK, SUBCUTANEOUS
     Route: 058
     Dates: start: 20050105
  2. COPEGUS [Suspect]
     Indication: HEPATITIS C VIRUS
     Dosage: 1000 MG, DAILY, ORAL
     Route: 048
     Dates: start: 20050105
  3. PROTONIX [Concomitant]
  4. ZOLOFT [Concomitant]

REACTIONS (8)
  - ANAEMIA [None]
  - BACK PAIN [None]
  - COLONIC POLYP [None]
  - FATIGUE [None]
  - NEUTROPENIA [None]
  - PAIN [None]
  - THROMBOCYTOPENIA [None]
  - WEIGHT INCREASED [None]
